FAERS Safety Report 9415667 (Version 1)
Quarter: 2013Q3

REPORT INFORMATION
  Report Type: Spontaneous
  Country: US (occurrence: US)
  Receive Date: 20130723
  Receipt Date: 20130723
  Transmission Date: 20140515
  Serious: No
  Sender: FDA-Public Use
  Company Number: US-009507513-1307USA009377

PATIENT
  Sex: Male

DRUGS (8)
  1. JANUMET [Suspect]
     Indication: TYPE 2 DIABETES MELLITUS
     Dosage: 1 TABLET TWICE DAILY
     Route: 048
     Dates: start: 201305, end: 2013
  2. PAROXETINE [Concomitant]
  3. PRINIVIL [Concomitant]
  4. LIPITOR [Concomitant]
  5. TAMSULOSIN HYDROCHLORIDE [Concomitant]
  6. PROSCAR [Concomitant]
  7. DOXAZOSIN MESYLATE [Concomitant]
  8. IBUPROFEN [Concomitant]

REACTIONS (1)
  - Rash [Recovering/Resolving]
